FAERS Safety Report 10448033 (Version 1)
Quarter: 2014Q3

REPORT INFORMATION
  Report Type: Spontaneous
  Country: US (occurrence: US)
  Receive Date: 20140911
  Receipt Date: 20140911
  Transmission Date: 20150326
  Serious: No
  Sender: FDA-Public Use
  Company Number: US-BAYER-2014-135418

PATIENT
  Age: 56 Year
  Sex: Female
  Weight: 122.45 kg

DRUGS (2)
  1. ALEVE [Suspect]
     Active Substance: NAPROXEN SODIUM
     Indication: ARTHRALGIA
     Dosage: 2 DF, QD
     Route: 048
     Dates: start: 201309, end: 201405
  2. ALEVE [Suspect]
     Active Substance: NAPROXEN SODIUM
     Indication: ARTHRALGIA
     Dosage: 2 DF OTHER FREQUENCY
     Route: 048

REACTIONS (4)
  - Fluid retention [Recovered/Resolved]
  - Drug ineffective [Recovered/Resolved]
  - Peripheral swelling [Recovered/Resolved]
  - Incorrect drug administration duration [None]

NARRATIVE: CASE EVENT DATE: 2013
